FAERS Safety Report 8597483-2 (Version None)
Quarter: 2012Q3

REPORT INFORMATION
  Report Type: 
  Country: None (occurrence: None)
  Receive Date: 20120816
  Receipt Date: 20120806
  Transmission Date: 20120928
  Serious: Yes (Other)
  Sender: FDA-Public Use
  Company Number: US-ACCORD-014363

PATIENT

DRUGS (1)
  1. TOPIRAMATE [Suspect]

REACTIONS (3)
  - CHOROIDAL EFFUSION [None]
  - ANGLE CLOSURE GLAUCOMA [None]
  - MYOPIA [None]
